FAERS Safety Report 10082849 (Version 1)
Quarter: 2014Q2

REPORT INFORMATION
  Report Type: Report from Study
  Country: FR (occurrence: FR)
  Receive Date: 20140416
  Receipt Date: 20140416
  Transmission Date: 20141212
  Serious: Yes (Death, Hospitalization)
  Sender: FDA-Public Use
  Company Number: PHHO2014FR005477

PATIENT
  Sex: 0

DRUGS (17)
  1. STI571 [Suspect]
     Indication: CHRONIC GRAFT VERSUS HOST DISEASE
     Dosage: UNK
     Dates: start: 20131204
  2. STI571 [Suspect]
     Dosage: UNK
  3. AMN107 [Suspect]
     Indication: CHRONIC GRAFT VERSUS HOST DISEASE
     Dosage: 400 MG (MORNING) AND 200 MG (EVENING)
     Dates: start: 20140217
  4. AMN107 [Suspect]
     Dosage: 400 MG, BID
     Dates: start: 20140303
  5. CORTANCYL [Concomitant]
  6. NOXAFIL [Concomitant]
     Dosage: 200 MG, TID
  7. CARDENSIEL [Concomitant]
     Dosage: 7.5
  8. TRIATEC [Concomitant]
     Dosage: 2.5
  9. CRESTOR [Concomitant]
     Dosage: 5
  10. EUPANTOL [Concomitant]
     Dosage: 40
  11. OROCAL D3 [Concomitant]
  12. UVEDOSE [Concomitant]
     Dosage: 100000 IU, PER 15 DAYS
  13. AMOXICILLIN [Concomitant]
     Dosage: 1 G, BID
  14. ZELITREX [Concomitant]
     Dosage: 500X2
  15. BACTRIM FORTE [Concomitant]
     Dosage: 3/WEEK
  16. CALCIUM FOLINATE [Concomitant]
     Dosage: 3/WEEK
  17. LEVOTHYROX [Concomitant]
     Dosage: 75

REACTIONS (3)
  - Depression [Recovered/Resolved]
  - Influenza [Recovered/Resolved]
  - Completed suicide [Fatal]
